FAERS Safety Report 9258587 (Version 1)
Quarter: 2013Q1

REPORT INFORMATION
  Report Type: Spontaneous
  Country: US (occurrence: None)
  Receive Date: 20121212
  Receipt Date: 20121212
  Transmission Date: 20140127
  Serious: No
  Sender: FDA-Public Use
  Company Number: 1211USA005404

PATIENT
  Age: 61 Year
  Sex: Female

DRUGS (3)
  1. REBETOL [Suspect]
     Indication: HEPATITIS C
     Route: 048
     Dates: start: 20060501, end: 20070401
  2. VICTRELIS [Suspect]
     Indication: HEPATITIS C
     Dates: start: 20121102
  3. PEG-INTRON [Suspect]
     Dates: start: 20121005

REACTIONS (6)
  - Hepatitis C [None]
  - Dry mouth [None]
  - Dysgeusia [None]
  - Fatigue [None]
  - Nausea [None]
  - Headache [None]
